FAERS Safety Report 8170959-8 (Version None)
Quarter: 2012Q1

REPORT INFORMATION
  Report Type: 
  Country: None (occurrence: None)
  Receive Date: 20120228
  Receipt Date: 20120214
  Transmission Date: 20120608
  Serious: Yes (Other)
  Sender: FDA-Public Use
  Company Number: NO-UCBSA-052088

PATIENT
  Age: 73 Year
  Sex: Female

DRUGS (2)
  1. METHOTREXATE [Concomitant]
  2. CIMZIA [Suspect]
     Route: 058
     Dates: start: 20100909

REACTIONS (1)
  - FEMORAL NECK FRACTURE [None]
